FAERS Safety Report 12179862 (Version 1)
Quarter: 2016Q1

REPORT INFORMATION
  Report Type: Spontaneous
  Country: US (occurrence: None)
  Receive Date: 20160314
  Receipt Date: 20160314
  Transmission Date: 20160526
  Serious: No
  Sender: FDA-Public Use
  Company Number: None

PATIENT
  Age: 52 Year
  Sex: Female

DRUGS (3)
  1. ATORVASTATIN [Suspect]
     Active Substance: ATORVASTATIN
  2. PITAVASTATIN [Suspect]
     Active Substance: PITAVASTATIN
  3. SIMVASTATIN. [Suspect]
     Active Substance: SIMVASTATIN

REACTIONS (3)
  - Pain [None]
  - Nausea [None]
  - Influenza [None]
